FAERS Safety Report 6392100-4 (Version None)
Quarter: 2009Q4

REPORT INFORMATION
  Report Type: 
  Country: None (occurrence: None)
  Receive Date: 20091007
  Receipt Date: 20090925
  Transmission Date: 20100525
  Serious: Yes (Hospitalization)
  Sender: FDA-Public Use
  Company Number: JP-MERCK-0909USA04658

PATIENT
  Age: 77 Year
  Sex: Female

DRUGS (2)
  1. SINGULAIR [Suspect]
     Indication: ASTHMA
     Route: 048
  2. HORMONES (UNSPECIFIED) [Concomitant]
     Indication: ASTHMA

REACTIONS (1)
  - ALLERGIC GRANULOMATOUS ANGIITIS [None]
